FAERS Safety Report 7385158-7 (Version None)
Quarter: 2011Q1

REPORT INFORMATION
  Report Type: 
  Country: None (occurrence: None)
  Receive Date: 20110330
  Receipt Date: 20110323
  Transmission Date: 20110831
  Serious: Yes (Hospitalization)
  Sender: FDA-Public Use
  Company Number: US-US-EMD SERONO, INC.-7044856

PATIENT
  Sex: Male

DRUGS (6)
  1. BACLOFEN [Concomitant]
     Dates: end: 20110301
  2. CYCLOBENZAPRINE [Concomitant]
     Dates: end: 20110301
  3. BETHANECHOL [Concomitant]
     Indication: URINARY TRACT DISORDER
     Dates: end: 20110301
  4. REBIF [Suspect]
     Indication: MULTIPLE SCLEROSIS
     Route: 058
     Dates: start: 20090802, end: 20110310
  5. AMANTADINE HCL [Concomitant]
     Dates: end: 20110301
  6. CLOZAPAN [Concomitant]
     Dates: end: 20110301

REACTIONS (10)
  - HYPERTENSION [None]
  - DIARRHOEA [None]
  - GAIT DISTURBANCE [None]
  - MUSCLE ATROPHY [None]
  - UNRESPONSIVE TO STIMULI [None]
  - URINARY TRACT INFECTION [None]
  - SEPSIS [None]
  - DELIRIUM [None]
  - FALL [None]
  - OEDEMA PERIPHERAL [None]
